FAERS Safety Report 16073108 (Version 1)
Quarter: 2019Q1

REPORT INFORMATION
  Report Type: Spontaneous
  Country: US (occurrence: US)
  Receive Date: 20190314
  Receipt Date: 20190314
  Transmission Date: 20190418
  Serious: Yes (Hospitalization)
  Sender: FDA-Public Use
  Company Number: US-VIFOR (INTERNATIONAL) INC.-VIT-2019-02249

PATIENT
  Sex: Female

DRUGS (12)
  1. ATORVASTATIN CALCIUM. [Concomitant]
     Active Substance: ATORVASTATIN CALCIUM
  2. TRADJENTA [Concomitant]
     Active Substance: LINAGLIPTIN
  3. ASPIRIN 81 [Concomitant]
     Active Substance: ASPIRIN
  4. NOVOLIN N [Concomitant]
     Active Substance: INSULIN HUMAN
  5. PHOSLO [Concomitant]
     Active Substance: CALCIUM ACETATE
  6. BRIMONIDINE TARTRATE. [Concomitant]
     Active Substance: BRIMONIDINE TARTRATE
  7. CALCIUM ACETATE. [Concomitant]
     Active Substance: CALCIUM ACETATE
  8. FOLIC ACID. [Concomitant]
     Active Substance: FOLIC ACID
  9. LANTUS [Concomitant]
     Active Substance: INSULIN GLARGINE
  10. LUMIGAN [Concomitant]
     Active Substance: BIMATOPROST
  11. FUROSEMIDE. [Concomitant]
     Active Substance: FUROSEMIDE
  12. VELTASSA [Suspect]
     Active Substance: PATIROMER
     Indication: HYPERKALAEMIA
     Route: 048
     Dates: start: 20180918

REACTIONS (1)
  - Hospitalisation [Unknown]

NARRATIVE: CASE EVENT DATE: 2018
